FAERS Safety Report 8978460 (Version 1)
Quarter: 2012Q4

REPORT INFORMATION
  Report Type: Spontaneous
  Country: US (occurrence: None)
  Receive Date: 20121218
  Receipt Date: 20121218
  Transmission Date: 20130627
  Serious: Yes (Hospitalization)
  Sender: FDA-Public Use
  Company Number: None

PATIENT
  Age: 53 Year
  Sex: Female
  Weight: 225 kg

DRUGS (3)
  1. TOPOMAX [Suspect]
     Dosage: 100 mg 2x but up to 400-500 oral
     Route: 048
     Dates: start: 2000, end: 200512
  2. PHENTERMINE [Suspect]
     Dosage: 15 mg 2x day oral
     Route: 048
  3. LOMOTIL [Concomitant]

REACTIONS (1)
  - Weight increased [None]
